FAERS Safety Report 19563827 (Version 5)
Quarter: 2021Q3

REPORT INFORMATION
  Report Type: Report from Study
  Country: US (occurrence: US)
  Receive Date: 20210714
  Receipt Date: 20210916
  Transmission Date: 20211014
  Serious: Yes (Hospitalization, Other)
  Sender: FDA-Public Use
  Company Number: US-B.I. PHARMACEUTICALS,INC./RIDGEFIELD-2021-BI-115337

PATIENT
  Sex: Male

DRUGS (2)
  1. OFEV [Suspect]
     Active Substance: NINTEDANIB
     Indication: IDIOPATHIC PULMONARY FIBROSIS
     Dosage: 100MG BID
     Route: 048
  2. OFEV [Suspect]
     Active Substance: NINTEDANIB
     Route: 048
     Dates: start: 20210423

REACTIONS (7)
  - Abdominal discomfort [Unknown]
  - Productive cough [Recovering/Resolving]
  - Cardiac failure congestive [Not Recovered/Not Resolved]
  - Haemoptysis [Unknown]
  - Oxygen saturation decreased [Unknown]
  - Dizziness postural [Not Recovered/Not Resolved]
  - Dyspnoea [Recovering/Resolving]
